FAERS Safety Report 8465595-X (Version None)
Quarter: 2012Q2

REPORT INFORMATION
  Report Type: 
  Country: None (occurrence: None)
  Receive Date: 20120626
  Receipt Date: 20120620
  Transmission Date: 20120825
  Serious: Yes (Hospitalization)
  Sender: FDA-Public Use
  Company Number: US-BAYER-2012-062563

PATIENT
  Age: 15 Year
  Sex: Female
  Weight: 92.063 kg

DRUGS (5)
  1. LEVOTHYROXINE [Concomitant]
     Indication: THYROID DISORDER
     Dosage: 50 MCG DAILY
     Dates: start: 20040101
  2. YASMIN [Suspect]
     Indication: HORMONE THERAPY
     Dosage: UNK
     Dates: start: 20080501, end: 20111201
  3. DROSPIRENONE AND ETHINYL ESTRADIOL [Suspect]
     Indication: HORMONE THERAPY
     Dosage: UNK
     Dates: start: 20080501, end: 20111201
  4. VICODIN [Concomitant]
  5. SYNTHROID [Concomitant]
     Indication: HYPOTHYROIDISM
     Dosage: 50 MCG

REACTIONS (3)
  - MENTAL DISORDER [None]
  - GALLBLADDER DISORDER [None]
  - CHOLECYSTITIS ACUTE [None]
